FAERS Safety Report 15867898 (Version 1)
Quarter: 2019Q1

REPORT INFORMATION
  Report Type: Spontaneous
  Country: GB (occurrence: GB)
  Receive Date: 20190125
  Receipt Date: 20190125
  Transmission Date: 20190417
  Serious: Yes (Other)
  Sender: FDA-Public Use
  Company Number: GB-MYLANLABS-2019M1006350

PATIENT
  Age: 64 Year
  Sex: Male
  Weight: 100 kg

DRUGS (15)
  1. AMLODIPINE [Concomitant]
     Active Substance: AMLODIPINE BESYLATE
     Dosage: 1 DOSAGE FORM, QD
     Dates: start: 20170602
  2. LANSOPRAZOLE. [Concomitant]
     Active Substance: LANSOPRAZOLE
     Dosage: 2 DOSAGE FORM, QD
     Dates: start: 20170926
  3. FLUCONAZOLE. [Concomitant]
     Active Substance: FLUCONAZOLE
     Dosage: 2 ON FIRST DAY, TOTAL 4 WEEK COURSE
     Dates: start: 20180523, end: 20180620
  4. GAVISCON ADVANCE                   /01340901/ [Concomitant]
     Dosage: UNK UNK, QID (5ML OR 10ML 4 TIMES/DAY, AFTER MEALS)
     Dates: start: 20170911
  5. LAXIDO [Concomitant]
     Active Substance: POLYETHYLENE GLYCOL 3350\POTASSIUM CHLORIDE\SODIUM BICARBONATE\SODIUM CHLORIDE
     Dosage: 1 DOSAGE , 2 DAYS
     Dates: start: 20180619
  6. CO-AMOXICLAV                       /00756801/ [Concomitant]
     Active Substance: AMOXICILLIN\CLAVULANIC ACID
     Dosage: TO COMPLETE 14 DAY COURSE
     Dates: start: 20180601, end: 20180615
  7. CO-CARELDOPA [Concomitant]
     Active Substance: CARBIDOPA\LEVODOPA
     Dosage: 0800, 1300
     Dates: start: 20171129
  8. RELVAR ELLIPTA [Concomitant]
     Active Substance: FLUTICASONE FUROATE\VILANTEROL TRIFENATATE
     Dosage: ALWAYS WASH YOUR MOUTH
     Route: 055
     Dates: start: 20180122
  9. ALPHOSYL                           /00478801/ [Concomitant]
     Dosage: 1 DOSAGE FORM, QD
     Dates: start: 20180423, end: 20180424
  10. INCRUSE ELLIPTA [Concomitant]
     Active Substance: UMECLIDINIUM BROMIDE
     Dosage: 1 DOSAGE FORM, QD
     Route: 055
     Dates: start: 20180122
  11. PREDNISOLONE. [Concomitant]
     Active Substance: PREDNISOLONE
     Dosage: WITH FOOD
     Dates: start: 20180601, end: 20180606
  12. ATORVASTATIN [Suspect]
     Active Substance: ATORVASTATIN
     Indication: PRODUCT USED FOR UNKNOWN INDICATION
     Dosage: UNK
     Dates: start: 20180619
  13. CARBOCISTEINE [Concomitant]
     Active Substance: CARBOCYSTEINE
     Dosage: IN THE MORNING, AT LUNCH AND IN THE EVENING.
     Dates: start: 20140625
  14. HYPROMELLOSE [Concomitant]
     Active Substance: HYPROMELLOSES
     Dosage: 1 GTT DROPS, PRN
     Dates: start: 20160603
  15. HYDROCORTISONE. [Concomitant]
     Active Substance: HYDROCORTISONE
     Dosage: 2 DOSAGE FORM, QD (APPLY AS DIRECTED)
     Dates: start: 20180423, end: 20180424

REACTIONS (4)
  - Nasal crusting [Unknown]
  - Sleep disorder [Unknown]
  - Nasal discomfort [Recovering/Resolving]
  - Dizziness [Unknown]

NARRATIVE: CASE EVENT DATE: 20180619
